FAERS Safety Report 20822110 (Version 2)
Quarter: 2022Q2

REPORT INFORMATION
  Report Type: Spontaneous
  Country: US (occurrence: US)
  Receive Date: 20220512
  Receipt Date: 20220609
  Transmission Date: 20220721
  Serious: No
  Sender: FDA-Public Use
  Company Number: US-PFIZER INC-202200504949

PATIENT
  Age: 32 Year
  Sex: Female
  Weight: 48 kg

DRUGS (1)
  1. XELJANZ XR [Suspect]
     Active Substance: TOFACITINIB CITRATE
     Indication: Rheumatoid arthritis
     Dosage: 11 MG, DAILY
     Route: 048
     Dates: start: 202201

REACTIONS (4)
  - Illness [Unknown]
  - Nasal congestion [Unknown]
  - Discouragement [Unknown]
  - Depressed mood [Unknown]
